FAERS Safety Report 8461588-7 (Version None)
Quarter: 2012Q2

REPORT INFORMATION
  Report Type: 
  Country: None (occurrence: None)
  Receive Date: 20120625
  Receipt Date: 20120619
  Transmission Date: 20120825
  Serious: Yes (Other)
  Sender: FDA-Public Use
  Company Number: PHEH2012US012183

PATIENT
  Sex: Female

DRUGS (1)
  1. METHERGINE [Suspect]

REACTIONS (4)
  - HYPERTONIA [None]
  - ACCIDENTAL EXPOSURE [None]
  - RESPIRATORY DEPRESSION [None]
  - DYSKINESIA [None]
